FAERS Safety Report 14291710 (Version 1)
Quarter: 2017Q4

REPORT INFORMATION
  Report Type: Spontaneous
  Country: US (occurrence: US)
  Receive Date: 20171215
  Receipt Date: 20171215
  Transmission Date: 20180321
  Serious: Yes (Other)
  Sender: FDA-Public Use
  Company Number: US-NOVOPROD-546685

PATIENT
  Age: 77 Year
  Sex: Female

DRUGS (6)
  1. HUMALOG [Suspect]
     Active Substance: INSULIN LISPRO
     Dosage: 10 U, SINGLE
     Dates: start: 20170518, end: 20170518
  2. HUMALOG [Suspect]
     Active Substance: INSULIN LISPRO
     Dosage: 20 U, SINGLE
     Route: 058
     Dates: start: 20170518, end: 20170518
  3. HUMALOG [Suspect]
     Active Substance: INSULIN LISPRO
     Dosage: 10 U, SINGLE
     Dates: start: 20170518, end: 20170518
  4. LEVEMIR [Suspect]
     Active Substance: INSULIN DETEMIR
     Dosage: 25 U, SINGLE
     Route: 058
     Dates: start: 20170517, end: 20170517
  5. HUMALOG [Suspect]
     Active Substance: INSULIN LISPRO
     Indication: TYPE 2 DIABETES MELLITUS
     Dosage: 10 UNITS 3 TIMES A DAY
     Route: 058
  6. LEVEMIR [Suspect]
     Active Substance: INSULIN DETEMIR
     Indication: TYPE 2 DIABETES MELLITUS
     Dosage: 45 UNITS AT NIGHT
     Route: 058

REACTIONS (2)
  - Blood glucose increased [Recovering/Resolving]
  - Intentional product use issue [Recovered/Resolved]

NARRATIVE: CASE EVENT DATE: 20170517
